FAERS Safety Report 17086861 (Version 1)
Quarter: 2019Q4

REPORT INFORMATION
  Report Type: Spontaneous
  Country: GB (occurrence: GB)
  Receive Date: 20191128
  Receipt Date: 20191128
  Transmission Date: 20200122
  Serious: Yes (Death, Life-Threatening, Disabling)
  Sender: FDA-Public Use
  Company Number: GB-TEVA-2019-GB-1141689

PATIENT
  Age: 68 Year
  Sex: Female
  Weight: 100 kg

DRUGS (1)
  1. NITROFURANTOIN MACROCRYSTALS [Suspect]
     Active Substance: NITROFURANTOIN
     Indication: CYSTITIS ULCERATIVE
     Route: 048
     Dates: start: 20180517, end: 20180921

REACTIONS (7)
  - Dyspnoea [Fatal]
  - Condition aggravated [Fatal]
  - Pneumonia [Fatal]
  - Respiratory failure [Fatal]
  - Pulmonary fibrosis [Fatal]
  - Left ventricular failure [Fatal]
  - Atrial flutter [Fatal]

NARRATIVE: CASE EVENT DATE: 20180901
